FAERS Safety Report 9098015 (Version 2)
Quarter: 2013Q1

REPORT INFORMATION
  Report Type: Spontaneous
  Country: IN (occurrence: IN)
  Receive Date: 20130212
  Receipt Date: 20130222
  Transmission Date: 20140127
  Serious: Yes (Other)
  Sender: FDA-Public Use
  Company Number: IN-BRISTOL-MYERS SQUIBB COMPANY-17365925

PATIENT
  Age: 43 Year
  Sex: Male

DRUGS (13)
  1. METFORMIN HCL [Suspect]
     Indication: TYPE 2 DIABETES MELLITUS
     Dosage: 19AUG2008:08JAN2010 FOR TYPE 2 DIABETES MELLITUS
  2. PSYLLIUM [Concomitant]
     Dosage: 1 DF: 3 TABLE SPOONS
     Dates: start: 20100129
  3. ATORVASTATIN [Concomitant]
     Dates: start: 20100215
  4. FENOFIBRATE [Concomitant]
     Dates: start: 20100215
  5. ASPIRIN [Concomitant]
     Dates: start: 20100215
  6. FERROUS FUMARATE + FOLIC ACID [Concomitant]
     Dosage: CAPS
     Dates: start: 20100601
  7. CARMELLOSE SODIUM [Concomitant]
     Dosage: TABS
     Dates: start: 20100129
  8. MAGNESIUM HYDROXIDE [Concomitant]
     Dosage: TABS
     Dates: start: 20100129
  9. DIMETICONE [Concomitant]
     Dosage: TABS
     Dates: start: 20100129
  10. ALUMINIUM HYDROXIDE [Concomitant]
     Dosage: TABS
     Dates: start: 20100129
  11. PYRIDOXINE HCL [Concomitant]
     Dosage: CAPS
     Dates: start: 20100601
  12. CYANOCOBALAMIN [Concomitant]
     Dosage: CAPS
     Dates: start: 20100601
  13. FOLIC ACID [Concomitant]
     Dosage: CAPS
     Dates: start: 20100601

REACTIONS (1)
  - Gastroenteritis [Recovered/Resolved]
